FAERS Safety Report 16841675 (Version 1)
Quarter: 2019Q3

REPORT INFORMATION
  Report Type: Report from Study
  Country: US (occurrence: US)
  Receive Date: 20190923
  Receipt Date: 20190923
  Transmission Date: 20191005
  Serious: Yes (Death, Hospitalization)
  Sender: FDA-Public Use
  Company Number: US-PFIZER INC-2016197457

PATIENT
  Age: 62 Year
  Sex: Male

DRUGS (3)
  1. PAZOPANIB [Suspect]
     Active Substance: PAZOPANIB
     Indication: HORMONE-REFRACTORY PROSTATE CANCER
     Dosage: 600 MG, 1X/DAY
     Route: 048
  2. DOCETAXEL. [Suspect]
     Active Substance: DOCETAXEL
     Indication: HORMONE-REFRACTORY PROSTATE CANCER
     Dosage: 75 MG/M2, CYCLIC (EVERY 3 WEEKS)
     Route: 042
  3. PREDNISONE. [Suspect]
     Active Substance: PREDNISONE
     Indication: HORMONE-REFRACTORY PROSTATE CANCER
     Dosage: 5 MG, 2X/DAY

REACTIONS (7)
  - Hypocalcaemia [Unknown]
  - Neutropenia [Unknown]
  - Pneumonia [Unknown]
  - Muscular weakness [Unknown]
  - Respiratory failure [Fatal]
  - Dehydration [Unknown]
  - Pleural effusion [Unknown]
